FAERS Safety Report 12199406 (Version 3)
Quarter: 2016Q4

REPORT INFORMATION
  Report Type: Spontaneous
  Country: US (occurrence: US)
  Receive Date: 20160322
  Receipt Date: 20161122
  Transmission Date: 20170207
  Serious: No
  Sender: FDA-Public Use
  Company Number: US-PFIZER INC-2016158785

PATIENT
  Age: 71 Year
  Sex: Male

DRUGS (12)
  1. RITALIN [Concomitant]
     Active Substance: METHYLPHENIDATE HYDROCHLORIDE
     Dosage: 15 MG, DAILY, [TAKE 10 MG IN THE MORNING AND 5 MG IN THE EVENING]
  2. PHOSPHA 250 NEUTRAL [Concomitant]
     Active Substance: POTASSIUM PHOSPHATE, MONOBASIC\SODIUM PHOSPHATE, DIBASIC, ANHYDROUS\SODIUM PHOSPHATE, MONOBASIC, MONOHYDRATE
     Dosage: 2 DF, DAILY
     Route: 048
  3. MEGESTROL [Concomitant]
     Active Substance: MEGESTROL
     Dosage: 40 MG, 1X/DAY (QAM)
     Route: 048
  4. RITALIN [Concomitant]
     Active Substance: METHYLPHENIDATE HYDROCHLORIDE
     Dosage: 5 MG, 2X/DAY
     Route: 048
  5. CALTRATE 600+D [Concomitant]
     Dosage: 1 DF, 1X/DAY (QPM)
     Route: 048
  6. LATANOPROST. [Concomitant]
     Active Substance: LATANOPROST
     Dosage: 2 GTT, DAILY (OPHTHALMIC SOLUTION, ONE DROP INTO BOTH EYES AT BEDTIME)
     Route: 047
  7. LISINOPRIL. [Concomitant]
     Active Substance: LISINOPRIL
     Dosage: 20 MG, DAILY
     Route: 048
  8. SUTENT [Suspect]
     Active Substance: SUNITINIB MALATE
     Indication: METASTATIC RENAL CELL CARCINOMA
     Dosage: 25 MG, CYCLIC, (TAKE DAILY FOR 28 DAYS, OFF 14 DAYS, REPEAT CYCLE)
     Route: 048
  9. SYNTHROID [Concomitant]
     Active Substance: LEVOTHYROXINE SODIUM
     Dosage: 100 UG, DAILY
     Route: 048
  10. LORATADINE. [Concomitant]
     Active Substance: LORATADINE
     Dosage: 10 MG, 1X/DAY  (QAM)
     Route: 048
  11. PRILOSEC [Concomitant]
     Active Substance: OMEPRAZOLE MAGNESIUM
     Dosage: 20 MG, DAILY
     Route: 048
  12. OXYCODONE AND ACETAMINOPHEN [Concomitant]
     Active Substance: ACETAMINOPHEN\OXYCODONE HYDROCHLORIDE
     Indication: PAIN
     Dosage: UNK, AS NEEDED, [OXYCODONE: 5MG] /[ACETAMINOPHEN: 325 MG], TAKE 1-2 TABLETS ORALLY Q4-6 HOURS]
     Route: 048

REACTIONS (3)
  - Disease progression [Unknown]
  - Back disorder [Unknown]
  - Metastatic renal cell carcinoma [Unknown]
